FAERS Safety Report 19608797 (Version 1)
Quarter: 2021Q3

REPORT INFORMATION
  Report Type: Spontaneous
  Country: US (occurrence: US)
  Receive Date: 20210724
  Receipt Date: 20210724
  Transmission Date: 20211014
  Serious: No
  Sender: FDA-Public Use
  Company Number: None

PATIENT
  Age: 0 Day
  Sex: Female
  Weight: 54 kg

DRUGS (6)
  1. FAMOTIDINE. [Concomitant]
     Active Substance: FAMOTIDINE
  2. SPIRONOLACTON [Concomitant]
     Active Substance: SPIRONOLACTONE
  3. SIMVASTATIN. [Concomitant]
     Active Substance: SIMVASTATIN
  4. CHLORTHALIDON [Concomitant]
     Active Substance: CHLORTHALIDONE
  5. CHANTIX [Suspect]
     Active Substance: VARENICLINE TARTRATE
     Indication: SMOKING CESSATION THERAPY
     Route: 048
     Dates: start: 20210707, end: 20210720
  6. METORPOLOL SUCCESS ER [Concomitant]

REACTIONS (2)
  - Recalled product administered [None]
  - Vomiting [None]

NARRATIVE: CASE EVENT DATE: 19500108
